FAERS Safety Report 17399267 (Version 2)
Quarter: 2021Q2

REPORT INFORMATION
  Report Type: Spontaneous
  Country: CA (occurrence: CA)
  Receive Date: 20200211
  Receipt Date: 20210608
  Transmission Date: 20210716
  Serious: Yes (Life-Threatening, Hospitalization, Other)
  Sender: FDA-Public Use
  Company Number: CA-AUROBINDO-AUR-APL-2020-006430

PATIENT
  Age: 52 Year
  Sex: Male

DRUGS (25)
  1. ESCITALOPRAM [Suspect]
     Active Substance: ESCITALOPRAM OXALATE
     Dosage: 10 MILLIGRAM, ONCE A DAY
     Route: 065
  2. DIAZEPAM. [Suspect]
     Active Substance: DIAZEPAM
     Dosage: 10 MILLIGRAM
     Route: 065
  3. ZOPICLONE [Suspect]
     Active Substance: ZOPICLONE
     Dosage: 187.5 MILLIGRAM
     Route: 048
  4. CITALOPRAM [Suspect]
     Active Substance: CITALOPRAM HYDROBROMIDE
     Indication: PRODUCT USED FOR UNKNOWN INDICATION
     Dosage: UNK
     Route: 048
  5. OXYCODONE [Suspect]
     Active Substance: OXYCODONE
     Dosage: 10 MILLIGRAM
     Route: 065
  6. ESCITALOPRAM [Suspect]
     Active Substance: ESCITALOPRAM OXALATE
     Dosage: 140 MILLIGRAM
     Route: 048
  7. DIAZEPAM. [Suspect]
     Active Substance: DIAZEPAM
     Dosage: UNK
     Route: 048
  8. MORPHINE SULFATE. [Suspect]
     Active Substance: MORPHINE SULFATE
     Indication: DEPRESSION
     Dosage: 420 MILLIGRAM
     Route: 065
  9. MORPHINE SULFATE. [Suspect]
     Active Substance: MORPHINE SULFATE
     Dosage: 30 MILLIGRAM, ONCE A DAY
     Route: 048
  10. ESCITALOPRAM [Suspect]
     Active Substance: ESCITALOPRAM OXALATE
     Indication: DEPRESSION
     Dosage: 10 MILLIGRAM
     Route: 065
  11. ALTACE [Suspect]
     Active Substance: RAMIPRIL
     Indication: PRODUCT USED FOR UNKNOWN INDICATION
     Dosage: UNK
     Route: 065
  12. DIAZEPAM. [Suspect]
     Active Substance: DIAZEPAM
     Indication: SPINAL STENOSIS
     Dosage: 1800 MILLIGRAM
     Route: 048
  13. LORAZEPAM. [Suspect]
     Active Substance: LORAZEPAM
     Indication: INSOMNIA
     Dosage: 30 MILLIGRAM
     Route: 048
  14. MORPHINE SULFATE. [Suspect]
     Active Substance: MORPHINE SULFATE
     Dosage: 100 MILLIGRAM
     Route: 065
  15. MORPHINE SULFATE. [Suspect]
     Active Substance: MORPHINE SULFATE
     Dosage: 9500 MILLIGRAM
     Route: 065
  16. ZOPICLONE [Suspect]
     Active Substance: ZOPICLONE
     Dosage: 7.5 MILLIGRAM
     Route: 065
  17. ACETAMINOPHEN;OXYCODONE HYDROCHLORIDE [Suspect]
     Active Substance: ACETAMINOPHEN\OXYCODONE HYDROCHLORIDE
     Indication: PRODUCT USED FOR UNKNOWN INDICATION
     Dosage: UNK
     Route: 048
  18. LORAZEPAM. [Suspect]
     Active Substance: LORAZEPAM
     Dosage: 01 MILLIGRAM
     Route: 048
  19. MORPHINE SULFATE. [Suspect]
     Active Substance: MORPHINE SULFATE
     Indication: SPINAL STENOSIS
     Dosage: 15 MILLIGRAM
     Route: 065
  20. MORPHINE SULFATE. [Suspect]
     Active Substance: MORPHINE SULFATE
     Dosage: 30 MILLIGRAM
     Route: 048
  21. MORPHINE SULFATE. [Suspect]
     Active Substance: MORPHINE SULFATE
     Dosage: UNK
     Route: 048
  22. ZOPICLONE [Suspect]
     Active Substance: ZOPICLONE
     Indication: INSOMNIA
     Dosage: 15 MILLIGRAM, ONCE A DAY
     Route: 048
  23. MORPHINE SULFATE. [Suspect]
     Active Substance: MORPHINE SULFATE
     Dosage: 2640 MILLIGRAM
     Route: 065
  24. OXYCODONE [Suspect]
     Active Substance: OXYCODONE
     Indication: SPINAL STENOSIS
     Dosage: UNK
     Route: 048
  25. OXYCODONE [Suspect]
     Active Substance: OXYCODONE
     Dosage: 20 MILLIGRAM
     Route: 048

REACTIONS (22)
  - Coma [Recovered/Resolved]
  - Loss of consciousness [Recovered/Resolved]
  - Drug interaction [Recovered/Resolved]
  - Coma scale abnormal [Recovered/Resolved]
  - Heart rate decreased [Recovered/Resolved]
  - Sinus tachycardia [Recovered/Resolved]
  - Opiates positive [Recovered/Resolved]
  - Overdose [Recovered/Resolved]
  - Hyperkalaemia [Recovered/Resolved]
  - Intentional overdose [Recovered/Resolved]
  - Blood creatine phosphokinase increased [Recovered/Resolved]
  - Blood pressure decreased [Recovered/Resolved]
  - Drug screen positive [Recovered/Resolved]
  - Electrocardiogram QT prolonged [Recovered/Resolved]
  - Oxygen saturation decreased [Recovered/Resolved]
  - Hypotension [Recovered/Resolved]
  - Suicide attempt [Recovered/Resolved]
  - Blood creatinine increased [Recovered/Resolved]
  - Blood potassium increased [Recovered/Resolved]
  - Bradycardia [Recovered/Resolved]
  - Electrocardiogram abnormal [Recovered/Resolved]
  - Mechanical ventilation [Recovered/Resolved]
